FAERS Safety Report 5085619-X (Version None)
Quarter: 2006Q3

REPORT INFORMATION
  Report Type: 
  Country: None (occurrence: None)
  Receive Date: 20060822
  Receipt Date: 20060818
  Transmission Date: 20061208
  Serious: Yes (Life-Threatening)
  Sender: FDA-Public Use
  Company Number: DE-GLAXOSMITHKLINE-D0050649A

PATIENT
  Age: 27 Year
  Sex: Female
  Weight: 49 kg

DRUGS (1)
  1. LAMICTAL [Suspect]
     Indication: EPILEPSY
     Dosage: 250MG PER DAY
     Route: 048
     Dates: start: 20060418

REACTIONS (6)
  - CIRCULATORY COLLAPSE [None]
  - DYSPNOEA [None]
  - MYOCARDIAL INFARCTION [None]
  - PULSE ABSENT [None]
  - SHOCK [None]
  - VENTRICULAR FIBRILLATION [None]
